FAERS Safety Report 9331065 (Version 4)
Quarter: 2013Q3

REPORT INFORMATION
  Report Type: Spontaneous
  Country: US (occurrence: US)
  Receive Date: 20130605
  Receipt Date: 20130807
  Transmission Date: 20140515
  Serious: Yes (Disabling, Other)
  Sender: FDA-Public Use
  Company Number: US-009507513-0805USA00687

PATIENT
  Sex: Female
  Weight: 58.96 kg

DRUGS (8)
  1. FOSAMAX [Suspect]
     Indication: OSTEOPOROSIS
     Dosage: UNK
     Route: 048
     Dates: start: 1997, end: 200704
  2. FOSAMAX [Suspect]
     Dosage: 10 MG, UNK
     Route: 048
     Dates: start: 19980807, end: 20010304
  3. FOSAMAX [Suspect]
     Dosage: 70 MG, UNK
     Route: 048
     Dates: start: 20010305, end: 20060816
  4. FOSAMAX [Suspect]
     Dosage: 70 MG, UNK
     Route: 048
     Dates: start: 200703, end: 200704
  5. ZOLOFT [Concomitant]
     Dates: start: 1990
  6. ESTROGENS (UNSPECIFIED) [Concomitant]
     Indication: HORMONE REPLACEMENT THERAPY
     Dosage: UNK
     Dates: start: 1982
  7. CALCIUM (UNSPECIFIED) [Concomitant]
     Dosage: 1572 MG, QD
  8. VITAMIN D (UNSPECIFIED) [Concomitant]
     Dosage: 725 IU, QD

REACTIONS (55)
  - Dental implantation [Unknown]
  - Tooth disorder [Unknown]
  - Sensitivity of teeth [Unknown]
  - Tooth fracture [Unknown]
  - Dental implantation [Unknown]
  - Dental caries [Unknown]
  - Tooth disorder [Unknown]
  - Device damage [Unknown]
  - Dental caries [Unknown]
  - Gingival disorder [Unknown]
  - Tooth disorder [Unknown]
  - Hypotension [Unknown]
  - Dental pulp disorder [Unknown]
  - Aphthous stomatitis [Unknown]
  - Urticaria [Unknown]
  - Rash [Unknown]
  - Back pain [Unknown]
  - Finger amputation [Unknown]
  - Jaw disorder [Unknown]
  - Osteomyelitis [Unknown]
  - Osteonecrosis of jaw [Unknown]
  - Pain [Unknown]
  - Osteomyelitis [Unknown]
  - Tooth loss [Unknown]
  - Laceration [Unknown]
  - Contusion [Unknown]
  - Seborrhoeic keratosis [Unknown]
  - Actinic keratosis [Unknown]
  - Glossodynia [Unknown]
  - Pharyngitis [Unknown]
  - Temporomandibular joint syndrome [Unknown]
  - Cellulitis [Recovering/Resolving]
  - Abscess [Unknown]
  - Papule [Unknown]
  - Dental caries [Unknown]
  - Tooth infection [Unknown]
  - Osteopenia [Unknown]
  - Intervertebral disc degeneration [Unknown]
  - Intraocular lens implant [Unknown]
  - Cataract operation [Unknown]
  - Trigeminal neuralgia [Unknown]
  - Hyperlipidaemia [Unknown]
  - Arthritis [Unknown]
  - Bite [Unknown]
  - Loose tooth [Unknown]
  - Tooth disorder [Unknown]
  - Tooth disorder [Unknown]
  - Bruxism [Unknown]
  - Endodontic procedure [Unknown]
  - Tongue tie operation [Unknown]
  - Gingival disorder [Unknown]
  - Dental implantation [Unknown]
  - Dental caries [Unknown]
  - Tooth fracture [Unknown]
  - Sensitivity of teeth [Unknown]
